FAERS Safety Report 8836061 (Version 1)
Quarter: 2012Q4

REPORT INFORMATION
  Report Type: 
  Country: US (occurrence: US)
  Receive Date: 20121011
  Receipt Date: 20121011
  Transmission Date: 20130627
  Serious: No
  Sender: FDA-Public Use
  Company Number: US-BAYER-2012-105732

PATIENT
  Age: 40 Year
  Sex: Female
  Weight: 59.86 kg

DRUGS (2)
  1. MAGNEVIST [Suspect]
     Indication: NUCLEAR MAGNETIC RESONANCE IMAGING BRAIN
     Dosage: 12 ml, ONCE
     Dates: start: 20121008, end: 20121008
  2. MAGNEVIST [Suspect]
     Indication: GLIOMA

REACTIONS (1)
  - Pruritus [Recovered/Resolved]
